FAERS Safety Report 8082542 (Version 10)
Quarter: 2017Q3

REPORT INFORMATION
  Report Type: Report from Study
  Country: JP (occurrence: JP)
  Receive Date: 20110809
  Receipt Date: 20170920
  Transmission Date: 20171128
  Serious: Yes (Hospitalization, Other)
  Sender: FDA-Public Use
  Company Number: PHHY2011JP55269

PATIENT
  Age: 61 Year
  Sex: Female
  Weight: 51 kg

DRUGS (12)
  1. BLOPRESS [Concomitant]
     Active Substance: CANDESARTAN CILEXETIL
     Indication: PRODUCT USED FOR UNKNOWN INDICATION
     Dosage: 8 MG, UNK
     Route: 048
  2. SELBEX [Concomitant]
     Active Substance: TEPRENONE
     Indication: PROPHYLAXIS
     Dosage: 50 MG, UNK
     Route: 048
     Dates: start: 20110420, end: 20110420
  3. INFLUENZA VACCINE [Concomitant]
     Active Substance: INFLUENZA VIRUS VACCINE
     Indication: PRODUCT USED FOR UNKNOWN INDICATION
     Route: 065
  4. MUCODYNE [Concomitant]
     Active Substance: CARBOCYSTEINE
     Indication: PROPHYLAXIS
     Dosage: 1500 MG, UNK
     Route: 048
  5. AFINITOR [Suspect]
     Active Substance: EVEROLIMUS
     Indication: METASTATIC RENAL CELL CARCINOMA
     Dosage: 10 MG, QD
     Route: 048
     Dates: start: 20110406, end: 20110421
  6. AFINITOR [Suspect]
     Active Substance: EVEROLIMUS
     Dosage: 10 MG, QD
     Route: 048
     Dates: start: 20110425, end: 20110512
  7. AFINITOR [Suspect]
     Active Substance: EVEROLIMUS
     Dosage: 5 MG, QD
     Route: 048
     Dates: start: 20110610, end: 20111213
  8. AZUNOL [Concomitant]
     Active Substance: SODIUM GUALENATE
     Indication: PROPHYLAXIS
     Route: 065
     Dates: start: 20110412
  9. DEXALTIN [Concomitant]
     Active Substance: DEXAMETHASONE
     Indication: PROPHYLAXIS
     Dosage: UNK UKN, UNK
     Route: 065
  10. RINDERON VG [Concomitant]
     Active Substance: BETAMETHASONE VALERATE\GENTAMICIN SULFATE
     Indication: PROPHYLAXIS
     Dosage: UNK
     Route: 065
     Dates: start: 20110721
  11. AFINITOR [Suspect]
     Active Substance: EVEROLIMUS
     Dosage: 10 MG, QD
     Route: 048
     Dates: start: 20111214, end: 20120213
  12. CALONAL [Concomitant]
     Active Substance: ACETAMINOPHEN
     Indication: PRODUCT USED FOR UNKNOWN INDICATION
     Dosage: 1200 MG, UNK
     Route: 048
     Dates: start: 20110519

REACTIONS (15)
  - Neutrophil count decreased [Recovered/Resolved]
  - Rash [Recovered/Resolved]
  - Anaemia [Recovered/Resolved]
  - Stomatitis [Recovered/Resolved]
  - Stomatitis [Recovered/Resolved]
  - Malignant neoplasm progression [Not Recovered/Not Resolved]
  - Blood pressure increased [Recovered/Resolved]
  - Pneumonia aspiration [Recovering/Resolving]
  - Malignant neoplasm progression [Recovering/Resolving]
  - Pyrexia [Recovered/Resolved]
  - White blood cell count decreased [Recovered/Resolved]
  - Rash generalised [Recovered/Resolved]
  - Bronchitis [Recovered/Resolved]
  - Stomatitis [Recovered/Resolved]
  - Neoplasm progression [Not Recovered/Not Resolved]

NARRATIVE: CASE EVENT DATE: 20110408
